FAERS Safety Report 23522817 (Version 1)
Quarter: 2024Q1

REPORT INFORMATION
  Report Type: Spontaneous
  Country: IT (occurrence: IT)
  Receive Date: 20240214
  Receipt Date: 20240214
  Transmission Date: 20240410
  Serious: Yes (Hospitalization, Other)
  Sender: FDA-Public Use
  Company Number: None

PATIENT
  Age: 23 Year
  Sex: Female

DRUGS (3)
  1. ZOLOFT [Suspect]
     Active Substance: SERTRALINE HYDROCHLORIDE
     Indication: Product used for unknown indication
     Dosage: 4 DOSAGE FORM (100 MG 4 TABLETS IN A SINGLE ADMINISTRATION)
     Route: 048
     Dates: start: 20240129, end: 20240129
  2. LYRICA [Suspect]
     Active Substance: PREGABALIN
     Indication: Product used for unknown indication
     Dosage: 20 DOSAGE FORM (75 MG 20 DOSAGE FORMS IN A SINGLE ADMINISTRATION)
     Route: 048
     Dates: start: 20240129, end: 20240129
  3. AMISULPRIDE [Suspect]
     Active Substance: AMISULPRIDE
     Indication: Product used for unknown indication
     Dosage: 7 DOSAGE FORM (7 TABLETS IN A SINGLE ADMINISTRATION)
     Route: 048
     Dates: start: 20240129, end: 20240129

REACTIONS (6)
  - Suicide attempt [Unknown]
  - Somnolence [Recovered/Resolved]
  - Mydriasis [Recovered/Resolved]
  - Vertigo [Recovered/Resolved]
  - Drug abuse [Unknown]
  - Intentional product misuse [Unknown]

NARRATIVE: CASE EVENT DATE: 20240129
